FAERS Safety Report 7033443-0 (Version None)
Quarter: 2010Q4

REPORT INFORMATION
  Report Type: 
  Country: None (occurrence: None)
  Receive Date: 20101005
  Receipt Date: 20100922
  Transmission Date: 20110411
  Serious: Yes (Death)
  Sender: FDA-Public Use
  Company Number: 2010P1001597

PATIENT
  Sex: Female

DRUGS (1)
  1. FENTANYL PATCH (NO PREF. NAME) [Suspect]

REACTIONS (2)
  - OVERDOSE [None]
  - SELF-MEDICATION [None]
